FAERS Safety Report 7481682-7 (Version None)
Quarter: 2011Q2

REPORT INFORMATION
  Report Type: 
  Country: None (occurrence: None)
  Receive Date: 20110516
  Receipt Date: 20110506
  Transmission Date: 20111010
  Serious: Yes (Other)
  Sender: FDA-Public Use
  Company Number: LB-ASTRAZENECA-2011SE27213

PATIENT
  Sex: Female

DRUGS (4)
  1. VASCOR [Concomitant]
  2. CONCOR [Concomitant]
  3. GERIATRIC PHARMATON [Concomitant]
  4. ZESTORETIC [Suspect]
     Route: 048

REACTIONS (1)
  - LYMPHADENOPATHY [None]
